FAERS Safety Report 6725164-6 (Version None)
Quarter: 2010Q2

REPORT INFORMATION
  Report Type: 
  Country: None (occurrence: None)
  Receive Date: 20100514
  Receipt Date: 20100504
  Transmission Date: 20101027
  Serious: Yes (Hospitalization)
  Sender: FDA-Public Use
  Company Number: FR-KINGPHARMUSA00001-K201000541

PATIENT
  Age: 60 Year
  Sex: Female

DRUGS (12)
  1. ALTACE [Suspect]
     Dosage: 2.5 MG, QD
     Route: 048
     Dates: start: 20090901, end: 20091201
  2. DANATROL [Suspect]
     Dosage: UNK
     Dates: start: 20091101, end: 20091101
  3. MABTHERA [Suspect]
     Dosage: UNK
     Route: 042
     Dates: start: 20090102, end: 20090429
  4. AMIODARONE [Suspect]
     Dosage: 200 MG, QD
     Route: 048
     Dates: start: 20090801
  5. VALACYCLOVIR [Suspect]
     Dosage: 500 MG, BID
     Route: 048
     Dates: start: 20090101, end: 20091201
  6. PREDNISOLONE [Suspect]
     Dosage: 5 MG, QD
     Route: 048
     Dates: start: 20090901
  7. KARDEGIC [Concomitant]
  8. NEXIUM [Concomitant]
  9. PRIMPERAN TAB [Concomitant]
  10. FUROSEMIDE [Concomitant]
  11. RISORDAN [Concomitant]
  12. SPIRAMYCIN [Concomitant]

REACTIONS (7)
  - CARDIAC FAILURE [None]
  - COUGH [None]
  - DYSPNOEA [None]
  - EJECTION FRACTION DECREASED [None]
  - INTERSTITIAL LUNG DISEASE [None]
  - KERATITIS INTERSTITIAL [None]
  - PLEURAL EFFUSION [None]
